FAERS Safety Report 21602087 (Version 1)
Quarter: 2022Q4

REPORT INFORMATION
  Report Type: Spontaneous
  Country: BR (occurrence: BR)
  Receive Date: 20221116
  Receipt Date: 20221116
  Transmission Date: 20230112
  Serious: Yes (Death, Hospitalization)
  Sender: FDA-Public Use
  Company Number: BR-009507513-2211BRA001372

PATIENT
  Age: 87 Year
  Sex: Female

DRUGS (12)
  1. PEMBROLIZUMAB [Suspect]
     Active Substance: PEMBROLIZUMAB
     Indication: Squamous cell carcinoma of the tongue
     Dosage: 200 MILLIGRAM, Q3W
     Route: 042
     Dates: start: 20190916, end: 20190916
  2. PEMBROLIZUMAB [Suspect]
     Active Substance: PEMBROLIZUMAB
     Dosage: 200 MILLIGRAM, Q3/CYCLE 3
     Route: 042
     Dates: start: 20191029, end: 20191029
  3. PEMBROLIZUMAB [Suspect]
     Active Substance: PEMBROLIZUMAB
     Dosage: 200 MILLIGRAM, Q3/CYCLE 5
     Route: 042
     Dates: start: 20191212, end: 20191212
  4. PEMBROLIZUMAB [Suspect]
     Active Substance: PEMBROLIZUMAB
     Dosage: 200 MILLIGRAM, Q3/CYCLE 6
     Route: 042
     Dates: start: 20200103, end: 20200103
  5. PEMBROLIZUMAB [Suspect]
     Active Substance: PEMBROLIZUMAB
     Dosage: 200 MILLIGRAM, Q3/CYCLE 7
     Route: 042
     Dates: start: 20200124, end: 20200124
  6. PEMBROLIZUMAB [Suspect]
     Active Substance: PEMBROLIZUMAB
     Dosage: 200 MILLIGRAM, Q3/CYCLE 8
     Route: 042
     Dates: start: 20200214, end: 20200214
  7. PEMBROLIZUMAB [Suspect]
     Active Substance: PEMBROLIZUMAB
     Dosage: 200 MILLIGRAM, Q3/CYCLE 9
     Route: 042
     Dates: start: 20200313, end: 20200313
  8. PEMBROLIZUMAB [Suspect]
     Active Substance: PEMBROLIZUMAB
     Dosage: 200 MILLIGRAM, Q3/CYCLE 10
     Route: 042
     Dates: start: 20200402, end: 20200402
  9. CARBOPLATIN [Suspect]
     Active Substance: CARBOPLATIN
     Indication: Squamous cell carcinoma of the tongue
     Dosage: AUC 5 EVERY 21 DAYS CYCLES 1-6
     Route: 042
     Dates: start: 20190916, end: 20190916
  10. CARBOPLATIN [Suspect]
     Active Substance: CARBOPLATIN
     Dosage: AUC 5 EVERY 21 DAYS CYCLES 1-6
     Route: 042
     Dates: start: 20191029, end: 20191029
  11. FLUOROURACIL SODIUM [Suspect]
     Active Substance: FLUOROURACIL SODIUM
     Indication: Squamous cell carcinoma of the tongue
     Dosage: 1000 MG/M2/DAY EVERY 21 DAYS CYCLES 1-6
     Route: 042
     Dates: start: 20190916, end: 20190916
  12. FLUOROURACIL SODIUM [Suspect]
     Active Substance: FLUOROURACIL SODIUM
     Dosage: 1000 MG/M2/DAY EVERY 21 DAYS CYCLES 1-6
     Route: 042
     Dates: start: 20191029, end: 20191029

REACTIONS (6)
  - Ill-defined disorder [Fatal]
  - Rash maculo-papular [Unknown]
  - Rash pruritic [Unknown]
  - Product use issue [Unknown]
  - Product use issue [Unknown]
  - Product use issue [Unknown]

NARRATIVE: CASE EVENT DATE: 20191011
